FAERS Safety Report 18725265 (Version 1)
Quarter: 2021Q1

REPORT INFORMATION
  Report Type: Not Available
  Country: None (occurrence: None)
  Receive Date: 20210111
  Receipt Date: 20210111
  Transmission Date: 20210419
  Serious: No
  Sender: FDA-Public Use
  Company Number: US-AKORN-159241

PATIENT
  Age: 51 Year
  Sex: Female

DRUGS (1)
  1. EPHEDRINE SULFATE INJECTION [Suspect]
     Active Substance: EPHEDRINE SULFATE

REACTIONS (3)
  - Hypersensitivity [Unknown]
  - Flushing [Recovered/Resolved]
  - Palpitations [Recovered/Resolved]
